FAERS Safety Report 7042628-9 (Version None)
Quarter: 2010Q4

REPORT INFORMATION
  Report Type: 
  Country: None (occurrence: None)
  Receive Date: 20101007
  Receipt Date: 20100927
  Transmission Date: 20110411
  Serious: Yes (Death, Hospitalization)
  Sender: FDA-Public Use
  Company Number: 2009AC000353

PATIENT
  Age: 90 Year
  Sex: Female

DRUGS (29)
  1. DIGOXIN [Suspect]
     Dosage: 0.25 MG; QD; PO
     Route: 048
     Dates: start: 20040204, end: 20051223
  2. DIGOXIN [Suspect]
     Dosage: 0.25 MG; QD; PO
     Route: 048
     Dates: start: 20070211, end: 20080501
  3. BACTRIM [Concomitant]
  4. SENOKOT [Concomitant]
  5. ASPIRIN [Concomitant]
  6. CLOPIDOGREL [Concomitant]
  7. RIVASTIGMINE [Concomitant]
  8. COUMADIN [Concomitant]
  9. NITROGLYCERIN [Concomitant]
  10. ACETAMINOPHEN [Concomitant]
  11. DROPERIDOL [Concomitant]
  12. MAALOX [Concomitant]
  13. ALPRAZOLAM [Concomitant]
  14. CEPACOL LOZENGE [Concomitant]
  15. LORAZEPAM [Concomitant]
  16. ARICEPT [Concomitant]
  17. ZITHROMAX [Concomitant]
  18. RISPERDAL [Concomitant]
  19. EXELON [Concomitant]
  20. SEROQUEL [Concomitant]
  21. BIDIL [Concomitant]
  22. NAMENDA [Concomitant]
  23. CEPHALEXIN [Concomitant]
  24. AMOXICILLIN [Concomitant]
  25. ATIVAN [Concomitant]
  26. BUMETANIDE [Concomitant]
  27. NIACIN [Concomitant]
  28. DIGIBIND [Concomitant]
  29. SYNTHROID [Concomitant]

REACTIONS (51)
  - ACUTE CORONARY SYNDROME [None]
  - ACUTE MYOCARDIAL INFARCTION [None]
  - ARRHYTHMIA [None]
  - ATRIAL FIBRILLATION [None]
  - BLOOD GLUCOSE INCREASED [None]
  - BLOOD PRESSURE INCREASED [None]
  - BRADYCARDIA [None]
  - BUNDLE BRANCH BLOCK LEFT [None]
  - CACHEXIA [None]
  - CARDIAC FAILURE CONGESTIVE [None]
  - CARDIOMYOPATHY [None]
  - CHILLS [None]
  - CONDITION AGGRAVATED [None]
  - CONFUSIONAL STATE [None]
  - DECUBITUS ULCER [None]
  - DEHYDRATION [None]
  - DELIRIUM [None]
  - ECONOMIC PROBLEM [None]
  - GANGRENE [None]
  - HAEMOGLOBIN DECREASED [None]
  - HALLUCINATION [None]
  - HYPOAESTHESIA [None]
  - HYPOGLYCAEMIA [None]
  - HYPOPHAGIA [None]
  - IMPAIRED HEALING [None]
  - LIMB TRAUMATIC AMPUTATION [None]
  - LOBAR PNEUMONIA [None]
  - MALNUTRITION [None]
  - MENTAL STATUS CHANGES [None]
  - MULTIPLE INJURIES [None]
  - NAUSEA [None]
  - NECROSIS [None]
  - NERVOUSNESS [None]
  - NO THERAPEUTIC RESPONSE [None]
  - PAIN [None]
  - PLEURAL EFFUSION [None]
  - PYREXIA [None]
  - RENAL FAILURE [None]
  - RESPIRATORY DISTRESS [None]
  - SELF INJURIOUS BEHAVIOUR [None]
  - SENILE DEMENTIA [None]
  - SEPSIS [None]
  - SKIN ULCER [None]
  - SOCIAL PROBLEM [None]
  - SOMNOLENCE [None]
  - THERAPEUTIC AGENT TOXICITY [None]
  - UNDERWEIGHT [None]
  - UNRESPONSIVE TO STIMULI [None]
  - URINARY TRACT INFECTION [None]
  - VOMITING [None]
  - WOUND INFECTION [None]
